FAERS Safety Report 10172363 (Version 2)
Quarter: 2014Q2

REPORT INFORMATION
  Report Type: Spontaneous
  Country: US (occurrence: US)
  Receive Date: 20140515
  Receipt Date: 20140521
  Transmission Date: 20141212
  Serious: Yes (Other)
  Sender: FDA-Public Use
  Company Number: US-JNJFOC-20140506840

PATIENT
  Age: 88 Year
  Sex: Male
  Weight: 60 kg

DRUGS (14)
  1. IMBRUVICA [Suspect]
     Indication: CHRONIC LYMPHOCYTIC LEUKAEMIA
     Route: 048
     Dates: start: 20140328
  2. IMBRUVICA [Suspect]
     Indication: CHRONIC LYMPHOCYTIC LEUKAEMIA
     Dosage: 4 DF, QD
     Route: 048
     Dates: start: 20140218
  3. CIPRO [Concomitant]
     Route: 048
  4. AZOPT [Concomitant]
     Dosage: A GTT, BID
     Route: 047
  5. COREG [Concomitant]
     Route: 048
  6. CRESTOR [Concomitant]
     Route: 048
  7. ERGOCALCIFEROL [Concomitant]
     Dosage: 50000 UNITS EVERY 7 DAYS
  8. LUMIGAN [Concomitant]
     Dosage: 1 DF, QD
     Route: 047
  9. MAGNESIUM OXIDE [Concomitant]
     Route: 048
  10. PANTOPRAZOLE SODIUM [Concomitant]
     Route: 048
  11. RITALIN [Concomitant]
     Dosage: 10 MG AS DIRECTED
     Route: 048
  12. TRAMADOL [Concomitant]
     Route: 048
  13. WELLBUTRIN [Concomitant]
     Route: 048
  14. NITROGLYCERINE [Concomitant]
     Route: 060

REACTIONS (5)
  - Ischaemic cardiomyopathy [Unknown]
  - Cardiac failure [Unknown]
  - Aortic stenosis [Unknown]
  - Weight increased [Unknown]
  - Muscle atrophy [Unknown]
